FAERS Safety Report 10847362 (Version 1)
Quarter: 2015Q1

REPORT INFORMATION
  Report Type: Spontaneous
  Country: US (occurrence: US)
  Receive Date: 20150220
  Receipt Date: 20150220
  Transmission Date: 20150721
  Serious: No
  Sender: FDA-Public Use
  Company Number: US-PFIZER INC-2015062294

PATIENT
  Age: 23 Year
  Sex: Male
  Weight: 113 kg

DRUGS (3)
  1. LORTAB [Concomitant]
     Active Substance: ACETAMINOPHEN\HYDROCODONE BITARTRATE
     Dosage: 500MG, ONCE A DAY
     Route: 054
  2. VIAGRA [Suspect]
     Active Substance: SILDENAFIL CITRATE
     Indication: ERECTILE DYSFUNCTION
     Dosage: THREE 3MG CAPSULES (9 MG),THREE TIMES A DAY
     Route: 048
     Dates: start: 201411
  3. LORTAB [Concomitant]
     Active Substance: ACETAMINOPHEN\HYDROCODONE BITARTRATE
     Indication: PAIN
     Dosage: 500MG, ONCE A DAY
     Route: 045

REACTIONS (2)
  - Drug ineffective [Unknown]
  - Disturbance in sexual arousal [Unknown]

NARRATIVE: CASE EVENT DATE: 201411
